FAERS Safety Report 5727519-5 (Version None)
Quarter: 2008Q2

REPORT INFORMATION
  Report Type: 
  Country: None (occurrence: None)
  Receive Date: 20080505
  Receipt Date: 20080423
  Transmission Date: 20081010
  Serious: Yes (Hospitalization, Other)
  Sender: FDA-Public Use
  Company Number: US-BAYER-200811648BCC

PATIENT
  Age: 29 Year
  Sex: Female
  Weight: 102 kg

DRUGS (1)
  1. ASPIRIN [Suspect]
     Indication: PYREXIA
     Dosage: UNIT DOSE: 325 MG
     Route: 048
     Dates: start: 19780101

REACTIONS (6)
  - DYSPEPSIA [None]
  - FAECAL INCONTINENCE [None]
  - HAEMATEMESIS [None]
  - HEPATITIS B [None]
  - MEASLES [None]
  - OBSTRUCTION GASTRIC [None]
